FAERS Safety Report 8136130-0 (Version None)
Quarter: 2012Q1

REPORT INFORMATION
  Report Type: 
  Country: None (occurrence: None)
  Receive Date: 20120214
  Receipt Date: 20120207
  Transmission Date: 20120608
  Serious: No
  Sender: FDA-Public Use
  Company Number: US-COVIDIEN/TYCO HEALTHCARE/MALLINCKRODT-T201200424

PATIENT
  Sex: Male
  Weight: 88.435 kg

DRUGS (5)
  1. FENTANYL-100 [Suspect]
     Indication: PAIN
     Dosage: 25 UG/HR, Q 72 HOURS
     Route: 062
     Dates: start: 20111107, end: 20120113
  2. ATENOLOL [Concomitant]
     Indication: HYPERTENSION
     Dosage: UNK
  3. METFORMIN HCL [Concomitant]
     Indication: DIABETES MELLITUS
     Dosage: UNK
  4. PLAVIX [Concomitant]
     Indication: CEREBROVASCULAR ACCIDENT
     Dosage: UNK
  5. ANTIVERT                           /00007101/ [Concomitant]
     Indication: DIZZINESS
     Dosage: UNK

REACTIONS (1)
  - APPLICATION SITE EXFOLIATION [None]
